FAERS Safety Report 9062019 (Version 1)
Quarter: 2013Q1

REPORT INFORMATION
  Report Type: Spontaneous
  Country: US (occurrence: US)
  Receive Date: 20130127
  Receipt Date: 20130127
  Transmission Date: 20140127
  Serious: No
  Sender: FDA-Public Use
  Company Number: US-ALLERGAN-1202527US

PATIENT
  Age: 63 Year
  Sex: Female

DRUGS (3)
  1. PRED FORTE [Suspect]
     Indication: CORNEAL GRAFT REJECTION
     Dosage: 1 GTT, Q1HR
     Route: 047
     Dates: start: 20120209
  2. PRED FORTE [Suspect]
     Dosage: UNK
     Route: 047
     Dates: start: 2005
  3. REFRESH PLUS [Concomitant]
     Indication: PRODUCT USED FOR UNKNOWN INDICATION

REACTIONS (3)
  - Eye pruritus [Recovering/Resolving]
  - Corneal oedema [Not Recovered/Not Resolved]
  - Pruritus [Recovering/Resolving]
